FAERS Safety Report 6549778-1 (Version None)
Quarter: 2010Q1

REPORT INFORMATION
  Report Type: 
  Country: None (occurrence: None)
  Receive Date: 20100125
  Receipt Date: 20100120
  Transmission Date: 20100710
  Serious: No
  Sender: FDA-Public Use
  Company Number: US-ASTRAZENECA-2009SE22805

PATIENT

DRUGS (2)
  1. SEROQUEL [Suspect]
     Route: 048
  2. METHADONE [Suspect]

REACTIONS (1)
  - NO ADVERSE EVENT [None]
